FAERS Safety Report 6569724-4 (Version None)
Quarter: 2010Q1

REPORT INFORMATION
  Report Type: 
  Country: None (occurrence: None)
  Receive Date: 20100204
  Receipt Date: 20100201
  Transmission Date: 20100710
  Serious: Yes (Death, Other)
  Sender: FDA-Public Use
  Company Number: PHHY2009GB48031

PATIENT
  Sex: Male

DRUGS (8)
  1. CLOZARIL [Suspect]
     Indication: SCHIZOPHRENIA
     Dosage: 750 MG, UNK
     Dates: start: 20060908
  2. HALOPERIDOL [Concomitant]
     Indication: PSYCHOTIC DISORDER
     Dosage: UNK
     Dates: start: 20080801
  3. HALOPERIDOL [Concomitant]
     Dosage: 40 MG, QD
     Dates: start: 20090801
  4. VALPROATE SODIUM [Concomitant]
     Indication: AFFECTIVE DISORDER
     Dosage: 1.6 G, UNK
     Route: 048
     Dates: start: 20080401
  5. HYOSCINE HBR HYT [Concomitant]
     Indication: SALIVARY HYPERSECRETION
     Dosage: 1 MG, UNK
     Dates: start: 20090901
  6. LANSOPRAZOLE [Concomitant]
     Indication: GASTRITIS
     Dosage: UNK
     Route: 048
     Dates: start: 20080501
  7. LANSOPRAZOLE [Concomitant]
     Dosage: 60 MG, UNK
     Dates: start: 20080501
  8. LACTULOSE [Concomitant]
     Indication: CONSTIPATION
     Dosage: 30 ML, UNK

REACTIONS (14)
  - ABDOMINAL PAIN UPPER [None]
  - AGITATION [None]
  - BUNDLE BRANCH BLOCK RIGHT [None]
  - CARDIAC DISORDER [None]
  - EROSIVE OESOPHAGITIS [None]
  - GASTRITIS [None]
  - GRAND MAL CONVULSION [None]
  - HAEMATEMESIS [None]
  - HIATUS HERNIA [None]
  - MENTAL IMPAIRMENT [None]
  - SINUS TACHYCARDIA [None]
  - SUDDEN DEATH [None]
  - URINARY INCONTINENCE [None]
  - URINE FLOW DECREASED [None]
